FAERS Safety Report 12718956 (Version 1)
Quarter: 2016Q3

REPORT INFORMATION
  Report Type: Spontaneous
  Country: GB (occurrence: GB)
  Receive Date: 20160906
  Receipt Date: 20160906
  Transmission Date: 20161109
  Serious: Yes (Hospitalization, Other)
  Sender: FDA-Public Use
  Company Number: GB-INTERNATIONAL MEDICATION SYSTEMS, LIMITED-1057102

PATIENT
  Sex: Male

DRUGS (10)
  1. BEVACIZUMAB [Suspect]
     Active Substance: BEVACIZUMAB
  2. TRAMADOL. [Suspect]
     Active Substance: TRAMADOL
  3. DEXAMETHASONE. [Suspect]
     Active Substance: DEXAMETHASONE
  4. CALCIUM FOLINATE [Suspect]
     Active Substance: LEUCOVORIN CALCIUM
  5. IRINOTECAN [Suspect]
     Active Substance: IRINOTECAN
  6. ATROPINE. [Suspect]
     Active Substance: ATROPINE
  7. ONDANSETRON [Suspect]
     Active Substance: ONDANSETRON
  8. 5-FU [Suspect]
     Active Substance: FLUOROURACIL
  9. APREPITANT. [Suspect]
     Active Substance: APREPITANT
  10. AVASTIN [Suspect]
     Active Substance: BEVACIZUMAB

REACTIONS (17)
  - Arthropathy [None]
  - Muscular weakness [None]
  - Oral pain [None]
  - Stoma site pain [None]
  - Pain [None]
  - Rhinorrhoea [None]
  - Hypertension [None]
  - Mouth ulceration [None]
  - Nasal septum perforation [None]
  - Gait disturbance [None]
  - Change of bowel habit [None]
  - Emotional disorder [None]
  - Alopecia [None]
  - Diarrhoea [None]
  - Decreased appetite [None]
  - Fatigue [None]
  - Pyrexia [None]
